FAERS Safety Report 5442217-3 (Version None)
Quarter: 2007Q3

REPORT INFORMATION
  Report Type: 
  Country: None (occurrence: None)
  Receive Date: 20070731
  Receipt Date: 20070616
  Transmission Date: 20080115
  Serious: No
  Sender: FDA-Public Use
  Company Number: US200706003891

PATIENT
  Age: 63 Year
  Sex: Female
  Weight: 82.5 kg

DRUGS (2)
  1. BYETTA [Suspect]
     Dosage: 5 UG, 2/D, SUBCUTANEOUS
     Route: 058
     Dates: start: 20070614
  2. EXENATIDE PEN [Concomitant]

REACTIONS (1)
  - MALAISE [None]
